FAERS Safety Report 4437267-X (Version None)
Quarter: 2004Q3

REPORT INFORMATION
  Report Type: 
  Country: None (occurrence: None)
  Receive Date: 20040827
  Receipt Date: 20040818
  Transmission Date: 20050211
  Serious: Yes (Hospitalization, Other)
  Sender: FDA-Public Use
  Company Number: US-SHR-03-014183

PATIENT
  Age: 67 Year
  Sex: Male

DRUGS (14)
  1. CAMPATH [Suspect]
     Indication: MYCOSIS FUNGOIDES
     Dosage: 3/10/30MG , INTRAVENOUS
     Route: 042
     Dates: start: 19990812, end: 19991008
  2. DIPHENHYDRAMINE HCL [Concomitant]
  3. ACETAMINOPHEN [Concomitant]
  4. TRIMETOPRIM-SULFA [Concomitant]
  5. VALACYCLOVIR HCL [Concomitant]
  6. LASIX [Concomitant]
  7. K-DUR 10 [Concomitant]
  8. VITAMIN K TAB [Concomitant]
  9. NEURONTIN [Concomitant]
  10. MAGNESIUM (MAGNESIUM) [Concomitant]
  11. DIFLUCAN [Concomitant]
  12. RIFAMPICIN [Concomitant]
  13. HYDROCORTISONE [Concomitant]
  14. COUMADIN [Concomitant]

REACTIONS (8)
  - CARDIAC FAILURE CONGESTIVE [None]
  - CARDIOMYOPATHY [None]
  - DRUG TOXICITY [None]
  - EJECTION FRACTION DECREASED [None]
  - OEDEMA PERIPHERAL [None]
  - PNEUMONITIS [None]
  - PULMONARY EMBOLISM [None]
  - PULMONARY OEDEMA [None]
